FAERS Safety Report 5814959-9 (Version None)
Quarter: 2008Q3

REPORT INFORMATION
  Report Type: 
  Country: None (occurrence: None)
  Receive Date: 20080718
  Receipt Date: 20080711
  Transmission Date: 20090109
  Serious: Yes (Hospitalization)
  Sender: FDA-Public Use
  Company Number: PHHY2008JP13955

PATIENT
  Age: 72 Year
  Sex: Female

DRUGS (3)
  1. EXJADE [Suspect]
     Indication: IRON OVERLOAD
     Dosage: UNK
     Route: 048
     Dates: start: 20080702, end: 20080704
  2. TRANSAMIN [Concomitant]
     Dosage: UNK
     Route: 048
     Dates: start: 20080702, end: 20080704
  3. ADONA [Concomitant]
     Dosage: UNK
     Route: 048
     Dates: start: 20080702, end: 20080704

REACTIONS (2)
  - DEHYDRATION [None]
  - VOMITING [None]
